FAERS Safety Report 4285143-8 (Version None)
Quarter: 2004Q1

REPORT INFORMATION
  Report Type: 
  Country: None (occurrence: None)
  Receive Date: 20040204
  Receipt Date: 20040129
  Transmission Date: 20041129
  Serious: Yes (Life-Threatening, Hospitalization, Disabling)
  Sender: FDA-Public Use
  Company Number: MX-BRISTOL-MYERS SQUIBB COMPANY-12491387

PATIENT
  Age: 22 Year
  Sex: Female

DRUGS (3)
  1. GATIFLOXACIN [Suspect]
     Indication: PHARYNGOTONSILLITIS
     Route: 048
     Dates: start: 20031122, end: 20031126
  2. GENTAMICIN [Suspect]
     Dates: start: 20031122, end: 20031126
  3. CEFTRIAXONE [Suspect]
     Route: 030
     Dates: start: 20031122, end: 20031126

REACTIONS (2)
  - STEVENS-JOHNSON SYNDROME [None]
  - TOXIC EPIDERMAL NECROLYSIS [None]
